FAERS Safety Report 6068580 (Version 1)
Quarter: 2020Q3

REPORT INFORMATION
  Report Type: Report from Study
  Country: GB (occurrence: GB)
  Receive Date: 20060620
  Receipt Date: 20060620
  Transmission Date: 20201104
  Serious: Yes (Death)
  Sender: FDA-Public Use
  Company Number: GB-ROCHE-423846

PATIENT
  Age: 73 Year
  Sex: Female
  Weight: 54 kg

DRUGS (4)
  1. IBANDRONIC ACID. [Suspect]
     Active Substance: IBANDRONIC ACID
     Indication: OSTEOPOROSIS POSTMENOPAUSAL
     Route: 048
     Dates: start: 20050909, end: 20051106
  2. AMIODARONE [Concomitant]
     Active Substance: AMIODARONE
     Dates: start: 20010723
  3. CANDESARTAN CILEXETIL. [Concomitant]
     Active Substance: CANDESARTAN CILEXETIL
     Dates: start: 20000128
  4. AMLODIPINE [Concomitant]
     Active Substance: AMLODIPINE BESYLATE
     Dates: start: 20040520

REACTIONS (3)
  - Death [Fatal]
  - Cerebral infarction [None]
  - Fall [None]

NARRATIVE: CASE EVENT DATE: 20051106
